FAERS Safety Report 4640020-5 (Version None)
Quarter: 2005Q1

REPORT INFORMATION
  Report Type: 
  Country: None (occurrence: None)
  Receive Date: 20050328
  Receipt Date: 20050104
  Transmission Date: 20050727
  Serious: No
  Sender: FDA-Public Use
  Company Number: USA050187402

PATIENT
  Age: 29 Year
  Sex: Male
  Weight: 153 kg

DRUGS (2)
  1. STRATTERA [Suspect]
     Indication: ATTENTION DEFICIT/HYPERACTIVITY DISORDER
     Dosage: 18 MG DAY
     Dates: start: 20050104
  2. NEXIUM [Concomitant]

REACTIONS (2)
  - ENERGY INCREASED [None]
  - FEELING JITTERY [None]
